FAERS Safety Report 6419442-8 (Version None)
Quarter: 2009Q4

REPORT INFORMATION
  Report Type: 
  Country: None (occurrence: None)
  Receive Date: 20091027
  Receipt Date: 20091015
  Transmission Date: 20100525
  Serious: Yes (Hospitalization)
  Sender: FDA-Public Use
  Company Number: 89641

PATIENT
  Age: 3 Year
  Sex: Male
  Weight: 15 kg

DRUGS (1)
  1. KETAMINE HCL [Suspect]
     Indication: SEDATION
     Dosage: 30MG/KG/IM (TOTAL 450 MG)
     Route: 030

REACTIONS (5)
  - ACCIDENTAL OVERDOSE [None]
  - AIRWAY COMPLICATION OF ANAESTHESIA [None]
  - INCORRECT DOSE ADMINISTERED [None]
  - MEDICATION ERROR [None]
  - SEDATION [None]
